FAERS Safety Report 6676968-X (Version None)
Quarter: 2010Q2

REPORT INFORMATION
  Report Type: 
  Country: None (occurrence: None)
  Receive Date: 20100412
  Receipt Date: 20100315
  Transmission Date: 20101027
  Serious: No
  Sender: FDA-Public Use
  Company Number: US-JNJFOC-20100304754

PATIENT
  Age: 35 Year
  Sex: Male

DRUGS (4)
  1. INVEGA SUSTENNA [Suspect]
     Indication: SCHIZOPHRENIA
     Route: 030
  2. VICODIN [Concomitant]
     Indication: PAIN
  3. VALIUM [Concomitant]
     Indication: TREMOR
  4. HALOPERIDOL [Concomitant]
     Route: 048

REACTIONS (3)
  - AGITATION [None]
  - FEELING ABNORMAL [None]
  - TREMOR [None]
